FAERS Safety Report 9505802 (Version 1)
Quarter: 2013Q1

REPORT INFORMATION
  Report Type: Spontaneous
  Country: US (occurrence: None)
  Receive Date: 20130219
  Receipt Date: 20130219
  Transmission Date: 20140127
  Serious: Yes (Hospitalization)
  Sender: FDA-Public Use
  Company Number: 1207USA011267

PATIENT
  Age: 77 Year
  Sex: Male

DRUGS (5)
  1. ZOCOR (SIMVASTATIN) TABLET [Suspect]
  2. ACEON [Suspect]
  3. PANTOZOL [Suspect]
  4. CLOPIDOGREL (CLOPIDOGREL) [Suspect]
  5. BISOPROLOL FUMARATE [Suspect]

REACTIONS (1)
  - Hepatitis cholestatic [None]
